FAERS Safety Report 7506198-0 (Version None)
Quarter: 2011Q2

REPORT INFORMATION
  Report Type: 
  Country: None (occurrence: None)
  Receive Date: 20110526
  Receipt Date: 20110524
  Transmission Date: 20111010
  Serious: Yes (Death, Hospitalization, Other)
  Sender: FDA-Public Use
  Company Number: US-ABBOTT-11P-163-0728069-00

PATIENT
  Sex: Male
  Weight: 55.842 kg

DRUGS (1)
  1. HUMIRA [Suspect]
     Indication: RHEUMATOID ARTHRITIS
     Route: 058
     Dates: start: 20101001, end: 20110101

REACTIONS (10)
  - RALES [None]
  - PALLOR [None]
  - ERYTHEMA [None]
  - ASTHENIA [None]
  - DYSPNOEA [None]
  - FUNGAL INFECTION [None]
  - INTERSTITIAL LUNG DISEASE [None]
  - PULMONARY OEDEMA [None]
  - RENAL IMPAIRMENT [None]
  - APHAGIA [None]
